FAERS Safety Report 15614117 (Version 1)
Quarter: 2018Q4

REPORT INFORMATION
  Report Type: Spontaneous
  Country: IT (occurrence: IT)
  Receive Date: 20181113
  Receipt Date: 20181113
  Transmission Date: 20190205
  Serious: Yes (Death, Other)
  Sender: FDA-Public Use
  Company Number: IT-MYLANLABS-2018M1085854

PATIENT
  Age: 56 Year
  Sex: Male

DRUGS (25)
  1. DEXAMETHASONE. [Suspect]
     Active Substance: DEXAMETHASONE
     Dosage: 2 CYCLES
     Route: 065
     Dates: start: 20100616, end: 20100803
  2. DOXORUBICIN [Suspect]
     Active Substance: DOXORUBICIN
     Dosage: 2 CYCLES
     Route: 065
     Dates: start: 20100616, end: 20100803
  3. PREDNISONE. [Suspect]
     Active Substance: PREDNISONE
     Indication: PLASMA CELL MYELOMA
     Dosage: SIX CYCLES
     Route: 065
     Dates: start: 20090115, end: 20090604
  4. ETOPOSIDE. [Suspect]
     Active Substance: ETOPOSIDE
     Indication: PLASMA CELL MYELOMA
     Dosage: 2 CYCLES
     Route: 065
     Dates: start: 20100616, end: 20100803
  5. PREDNISONE. [Suspect]
     Active Substance: PREDNISONE
     Dosage: 1 CYCLE
     Route: 065
     Dates: start: 20140625
  6. CYCLOPHOSPHAMIDE. [Suspect]
     Active Substance: CYCLOPHOSPHAMIDE
     Dosage: 2 CYCLES
     Route: 065
     Dates: start: 20100616, end: 20100803
  7. CARFILZOMIB [Suspect]
     Active Substance: CARFILZOMIB
     Indication: PLASMA CELL MYELOMA
     Dosage: 7 CYCLES
     Route: 065
     Dates: start: 20151115, end: 20160225
  8. DEXAMETHASONE. [Suspect]
     Active Substance: DEXAMETHASONE
     Dosage: THREE CYCLES
     Route: 065
     Dates: start: 20091030, end: 20091211
  9. DEXAMETHASONE. [Suspect]
     Active Substance: DEXAMETHASONE
     Indication: PLASMA CELL MYELOMA
     Dosage: FOUR CYCLES
     Route: 065
     Dates: start: 20080701, end: 20080923
  10. DOXORUBICIN [Suspect]
     Active Substance: DOXORUBICIN
     Indication: PLASMA CELL MYELOMA
     Dosage: 4 CYCLES
     Route: 065
     Dates: start: 20100115, end: 20100406
  11. BENDAMUSTINE HYDROCHLORIDE. [Suspect]
     Active Substance: BENDAMUSTINE HYDROCHLORIDE
     Indication: PLASMA CELL MYELOMA
     Dosage: 5 CYCLES
     Route: 065
     Dates: start: 20140115, end: 20140520
  12. CYCLOPHOSPHAMIDE. [Suspect]
     Active Substance: CYCLOPHOSPHAMIDE
     Indication: PLASMA CELL MYELOMA
     Dosage: SINGLE CYCLE
     Route: 065
     Dates: start: 20081121
  13. BORTEZOMIB. [Suspect]
     Active Substance: BORTEZOMIB
     Indication: PLASMA CELL MYELOMA
     Dosage: THREE CYCLES
     Route: 065
     Dates: start: 20091030, end: 20091211
  14. ALPELISIB [Suspect]
     Active Substance: ALPELISIB
     Indication: PLASMA CELL MYELOMA
     Dosage: 11 CYCLES
     Route: 065
     Dates: start: 20140807, end: 20150526
  15. DEXAMETHASONE. [Suspect]
     Active Substance: DEXAMETHASONE
     Dosage: 4 CYCLES
     Route: 065
     Dates: start: 20100115, end: 20100406
  16. MELPHALAN. [Suspect]
     Active Substance: MELPHALAN
     Indication: PLASMA CELL MYELOMA
     Dosage: SIX CYCLES
     Route: 065
     Dates: start: 20090115, end: 20090604
  17. LENALIDOMIDE [Suspect]
     Active Substance: LENALIDOMIDE
     Dosage: SIX CYCLES
     Route: 065
     Dates: start: 20090115, end: 20090604
  18. LGH 447 [Suspect]
     Active Substance: INVESTIGATIONAL PRODUCT
     Indication: PLASMA CELL MYELOMA
     Dosage: 11 CYCLES
     Route: 065
     Dates: start: 20140807, end: 20150526
  19. LENALIDOMIDE [Suspect]
     Active Substance: LENALIDOMIDE
     Indication: PLASMA CELL MYELOMA
     Dosage: FOUR CYCLES
     Route: 065
     Dates: start: 20080701, end: 20080923
  20. BORTEZOMIB. [Suspect]
     Active Substance: BORTEZOMIB
     Dosage: 2 CYCLES
     Route: 065
     Dates: start: 20100616, end: 20100803
  21. POMALIDOMIDE [Suspect]
     Active Substance: POMALIDOMIDE
     Indication: PLASMA CELL MYELOMA
     Dosage: 7 CYCLES
     Route: 065
     Dates: start: 20151115, end: 20160225
  22. DEXAMETHASONE. [Suspect]
     Active Substance: DEXAMETHASONE
     Dosage: 7 CYCLES
     Route: 065
     Dates: start: 20151115, end: 20160225
  23. MELPHALAN. [Suspect]
     Active Substance: MELPHALAN
     Dosage: 1 CYCLE
     Route: 065
     Dates: start: 20140625
  24. LAMIVUDINE. [Suspect]
     Active Substance: LAMIVUDINE
     Indication: PROPHYLAXIS
     Route: 065
  25. BORTEZOMIB. [Suspect]
     Active Substance: BORTEZOMIB
     Dosage: 4 CYCLES
     Route: 065
     Dates: start: 20100115, end: 20100406

REACTIONS (2)
  - Hepatitis B reactivation [Not Recovered/Not Resolved]
  - Drug resistance [Unknown]
